FAERS Safety Report 6258062-5 (Version None)
Quarter: 2009Q3

REPORT INFORMATION
  Report Type: 
  Country: None (occurrence: None)
  Receive Date: 20090702
  Receipt Date: 20090617
  Transmission Date: 20100115
  Serious: Yes (Other)
  Sender: FDA-Public Use
  Company Number: 09-062

PATIENT
  Age: 77 Year
  Sex: Male

DRUGS (1)
  1. CEFEPIME [Suspect]
     Dosage: 3G/DAY,

REACTIONS (3)
  - CONFUSIONAL STATE [None]
  - ENCEPHALOPATHY [None]
  - STATUS EPILEPTICUS [None]
